FAERS Safety Report 23681045 (Version 2)
Quarter: 2024Q3

REPORT INFORMATION
  Report Type: Spontaneous
  Country: GR (occurrence: GR)
  Receive Date: 20240328
  Receipt Date: 20240724
  Transmission Date: 20241017
  Serious: Yes (Other)
  Sender: ABBVIE
  Company Number: GR-GALENICAP-2024000019

PATIENT
  Age: 39 Year
  Sex: Female

DRUGS (1)
  1. MESALAMINE [Suspect]
     Active Substance: MESALAMINE
     Indication: Colitis ulcerative
     Dosage: FORM STRENGTH :1 GM
     Route: 065

REACTIONS (3)
  - Rectal haemorrhage [Recovered/Resolved]
  - Suspected product quality issue [Unknown]
  - Oedema [Unknown]
